FAERS Safety Report 19625565 (Version 1)
Quarter: 2021Q3

REPORT INFORMATION
  Report Type: Spontaneous
  Country: US (occurrence: US)
  Receive Date: 20210728
  Receipt Date: 20210728
  Transmission Date: 20211014
  Serious: Yes (Other)
  Sender: FDA-Public Use
  Company Number: None

PATIENT
  Age: 36 Year
  Sex: Female
  Weight: 54.9 kg

DRUGS (3)
  1. ATOMOXETINE 40MG CAPSULES [Suspect]
     Active Substance: ATOMOXETINE
     Indication: DISTURBANCE IN ATTENTION
     Dosage: QUANTITY:1 CAPSULE(S);?
     Route: 048
     Dates: start: 20201029, end: 20210719
  2. COLLAGEN SUPPLEMENTS [Concomitant]
  3. PROTEIN POWDER SMOOTHIES [Concomitant]

REACTIONS (13)
  - Hypertension [None]
  - Restlessness [None]
  - Vomiting [None]
  - Intracranial aneurysm [None]
  - Tyramine reaction [None]
  - Food poisoning [None]
  - Headache [None]
  - Nausea [None]
  - Lactose intolerance [None]
  - Alcohol use [None]
  - Middle insomnia [None]
  - Dizziness [None]
  - Vertigo [None]

NARRATIVE: CASE EVENT DATE: 20210718
